FAERS Safety Report 6737654-0 (Version None)
Quarter: 2010Q2

REPORT INFORMATION
  Report Type: 
  Country: None (occurrence: None)
  Receive Date: 20100524
  Receipt Date: 20100514
  Transmission Date: 20101027
  Serious: Yes (Hospitalization)
  Sender: FDA-Public Use
  Company Number: US-ASTRAZENECA-2010SE22169

PATIENT
  Age: 91 Year
  Sex: Female

DRUGS (4)
  1. NEXIUM [Suspect]
     Indication: GASTROOESOPHAGEAL REFLUX DISEASE
     Route: 048
  2. CENTRUM [Concomitant]
  3. FIBER SUPPLEMENT [Concomitant]
  4. VITAMIN D [Concomitant]

REACTIONS (5)
  - AMNESIA [None]
  - DRY MOUTH [None]
  - HAEMORRHOIDS [None]
  - INCONTINENCE [None]
  - THROAT IRRITATION [None]
